FAERS Safety Report 10923483 (Version 2)
Quarter: 2015Q2

REPORT INFORMATION
  Report Type: Spontaneous
  Country: US (occurrence: US)
  Receive Date: 20150318
  Receipt Date: 20150526
  Transmission Date: 20150821
  Serious: Yes (Other)
  Sender: FDA-Public Use
  Company Number: US-JNJFOC-20130907573

PATIENT
  Sex: Male

DRUGS (1)
  1. HALDOL [Suspect]
     Active Substance: HALOPERIDOL
     Indication: TOURETTE^S DISORDER
     Dosage: FOR 30 YEARS.
     Route: 065

REACTIONS (2)
  - Tardive dyskinesia [Unknown]
  - Extrapyramidal disorder [Unknown]
